FAERS Safety Report 13865721 (Version 3)
Quarter: 2017Q4

REPORT INFORMATION
  Report Type: Report from Study
  Country: CN (occurrence: CN)
  Receive Date: 20170814
  Receipt Date: 20171018
  Transmission Date: 20180320
  Serious: Yes (Hospitalization)
  Sender: FDA-Public Use
  Company Number: CN-ASTRAZENECA-2017SE82171

PATIENT
  Age: 19697 Day
  Sex: Male

DRUGS (10)
  1. EPANOVA [Suspect]
     Active Substance: OMEGA-3-CARBOXYLIC ACIDS
     Indication: HYPERTRIGLYCERIDAEMIA
     Route: 048
     Dates: start: 20160721
  2. TROXERUTIN [Concomitant]
     Active Substance: TROXERUTIN
     Indication: TYPE 2 DIABETES MELLITUS
     Route: 041
     Dates: start: 20160808
  3. GLUCOBAY [Concomitant]
     Active Substance: ACARBOSE
     Indication: TYPE 2 DIABETES MELLITUS
     Route: 048
     Dates: start: 20160812
  4. LIPITOR [Concomitant]
     Active Substance: ATORVASTATIN CALCIUM
     Indication: HYPERLIPIDAEMIA
     Route: 048
     Dates: start: 2010
  5. SALVIA MILTIORRHIZA [Concomitant]
     Active Substance: HERBALS
     Indication: CORONARY ARTERY DISEASE
     Route: 048
     Dates: start: 20160808
  6. EPANOVA [Suspect]
     Active Substance: OMEGA-3-CARBOXYLIC ACIDS
     Indication: HYPERTRIGLYCERIDAEMIA
     Route: 048
     Dates: start: 20160607, end: 20160712
  7. HUMALOG25 [Concomitant]
     Indication: TYPE 2 DIABETES MELLITUS
     Dosage: 20  PATCH DOSING BID
     Route: 058
     Dates: start: 20160817
  8. IRBESARTAN. [Concomitant]
     Active Substance: IRBESARTAN
     Indication: HYPERTENSION
     Route: 048
     Dates: start: 20170410
  9. BETALOC [Concomitant]
     Active Substance: METOPROLOL TARTRATE
     Indication: HYPERTENSION
     Route: 048
     Dates: start: 20170410
  10. BAYASPRIN [Concomitant]
     Indication: CORONARY ARTERY DISEASE
     Route: 048
     Dates: start: 20170410

REACTIONS (1)
  - Atrial fibrillation [Recovered/Resolved]

NARRATIVE: CASE EVENT DATE: 20170806
